FAERS Safety Report 8602350-1 (Version None)
Quarter: 2012Q2

REPORT INFORMATION
  Report Type: 
  Country: None (occurrence: None)
  Receive Date: 20120423
  Receipt Date: 20080826
  Transmission Date: 20120825
  Serious: Yes (Hospitalization, Other)
  Sender: FDA-Public Use
  Company Number: PHEH2008US07530

PATIENT

DRUGS (1)
  1. FEMARA [Suspect]
     Dates: start: 20070901

REACTIONS (8)
  - RASH [None]
  - ARTHRALGIA [None]
  - ANAL PRURITUS [None]
  - MYALGIA [None]
  - CHEST PAIN [None]
  - VULVOVAGINAL PRURITUS [None]
  - HYPERHIDROSIS [None]
  - BONE PAIN [None]
